FAERS Safety Report 24293602 (Version 1)
Quarter: 2024Q3

REPORT INFORMATION
  Report Type: Spontaneous
  Country: US (occurrence: None)
  Receive Date: 20240906
  Receipt Date: 20240906
  Transmission Date: 20241016
  Serious: No
  Sender: DOMPE FARMACEUTICI
  Company Number: US-FARMAPROD-202402-0403

PATIENT
  Age: 82 Year
  Sex: Female

DRUGS (9)
  1. OXERVATE [Suspect]
     Active Substance: CENEGERMIN-BKBJ
     Indication: Neurotrophic keratopathy
     Route: 047
     Dates: start: 20240130
  2. OXERVATE [Suspect]
     Active Substance: CENEGERMIN-BKBJ
  3. RESTASIS [Concomitant]
     Active Substance: CYCLOSPORINE
  4. VITAMIN D3 [Concomitant]
     Active Substance: CHOLECALCIFEROL
  5. ESOMEPRAZOLE MAGNESIUM [Concomitant]
     Active Substance: ESOMEPRAZOLE MAGNESIUM
  6. LEVOTHYROXINE SODIUM [Concomitant]
     Active Substance: LEVOTHYROXINE SODIUM
  7. MYRBETRIQ [Concomitant]
     Active Substance: MIRABEGRON
  8. CALCIUM [Concomitant]
     Active Substance: CALCIUM
     Dosage: 500 (1250)
  9. VITAMINS [Concomitant]
     Active Substance: VITAMINS
     Dosage: 50 PLUS

REACTIONS (7)
  - Wrong technique in product usage process [Unknown]
  - Eyelid pain [Not Recovered/Not Resolved]
  - Inappropriate schedule of product administration [Unknown]
  - Eye pain [Not Recovered/Not Resolved]
  - Dry eye [Unknown]
  - Lacrimation increased [Not Recovered/Not Resolved]
  - Ocular hyperaemia [Unknown]

NARRATIVE: CASE EVENT DATE: 20240202
